FAERS Safety Report 4279087-5 (Version None)
Quarter: 2004Q1

REPORT INFORMATION
  Report Type: 
  Country: None (occurrence: None)
  Receive Date: 20040126
  Receipt Date: 20040120
  Transmission Date: 20041129
  Serious: Yes (Death)
  Sender: FDA-Public Use
  Company Number: WAES 0401USA01421

PATIENT
  Age: 45 Year
  Sex: Female

DRUGS (2)
  1. VIOXX [Suspect]
     Indication: POST PROCEDURAL PAIN
     Route: 048
     Dates: start: 20030101
  2. EFFEXOR [Concomitant]

REACTIONS (1)
  - RUPTURED CEREBRAL ANEURYSM [None]
